FAERS Safety Report 25174448 (Version 1)
Quarter: 2025Q2

REPORT INFORMATION
  Report Type: Spontaneous
  Country: US (occurrence: US)
  Receive Date: 20250408
  Receipt Date: 20250408
  Transmission Date: 20250717
  Serious: Yes (Death, Other)
  Sender: Kenvue
  Company Number: US-KENVUE-20250401267

PATIENT
  Sex: Male

DRUGS (1)
  1. TETRAHYDROZOLINE HYDROCHLORIDE [Suspect]
     Active Substance: TETRAHYDROZOLINE HYDROCHLORIDE
     Indication: Product used for unknown indication
     Route: 065

REACTIONS (2)
  - Poisoning deliberate [Fatal]
  - Intentional product misuse [Fatal]
